FAERS Safety Report 5937927-5 (Version None)
Quarter: 2008Q4

REPORT INFORMATION
  Report Type: 
  Country: None (occurrence: None)
  Receive Date: 20081031
  Receipt Date: 20081021
  Transmission Date: 20090506
  Serious: No
  Sender: FDA-Public Use
  Company Number: US-PFIZER INC-2008067532

PATIENT
  Sex: Female

DRUGS (1)
  1. DIFLUCAN [Suspect]

REACTIONS (1)
  - NO ADVERSE EVENT [None]
